FAERS Safety Report 9089366 (Version 1)
Quarter: 2013Q1

REPORT INFORMATION
  Report Type: Spontaneous
  Country: US (occurrence: US)
  Receive Date: 20130131
  Receipt Date: 20130131
  Transmission Date: 20140127
  Serious: No
  Sender: FDA-Public Use
  Company Number: US-ABBOTT-12P-163-1011207-00

PATIENT
  Age: 63 Year
  Sex: Female
  Weight: 47.22 kg

DRUGS (7)
  1. HUMIRA [Suspect]
     Indication: RHEUMATOID ARTHRITIS
     Dates: start: 20121109
  2. DICLOFENAC (NON-ABBOTT) [Concomitant]
     Indication: RHEUMATOID ARTHRITIS
  3. METHOTREXATE (NON-ABBOTT) [Concomitant]
     Indication: RHEUMATOID ARTHRITIS
  4. VICODIN (NON-ABBOTT) [Concomitant]
     Indication: PAIN
  5. LISINOPRIL (NON-ABBOTT) [Concomitant]
     Indication: HYPERTENSION
  6. FOLIC ACID [Concomitant]
     Indication: RHEUMATOID ARTHRITIS
  7. HCTZ (NON-ABBOTT) [Concomitant]
     Indication: HYPERTENSION

REACTIONS (2)
  - Headache [Not Recovered/Not Resolved]
  - Dyspnoea [Not Recovered/Not Resolved]
